FAERS Safety Report 10216770 (Version 2)
Quarter: 2014Q2

REPORT INFORMATION
  Report Type: Spontaneous
  Country: US (occurrence: US)
  Receive Date: 20140604
  Receipt Date: 20140626
  Transmission Date: 20141212
  Serious: Yes (Disabling)
  Sender: FDA-Public Use
  Company Number: US-PFIZER INC-2014148850

PATIENT
  Age: 52 Year
  Sex: Female
  Weight: 57 kg

DRUGS (12)
  1. AROMASIN [Suspect]
     Indication: BREAST CANCER METASTATIC
     Dosage: UNK
     Dates: start: 201011
  2. AROMASIN [Suspect]
     Indication: BREAST CANCER RECURRENT
  3. TYKERB [Suspect]
     Indication: BREAST CANCER METASTATIC
     Dosage: 250 MG, UNK
     Route: 048
     Dates: start: 20101112
  4. TYKERB [Suspect]
     Indication: BREAST CANCER RECURRENT
     Dosage: 4 PILLS, DAILY
     Route: 048
     Dates: start: 201105
  5. XELODA [Suspect]
     Indication: BREAST CANCER METASTATIC
     Dosage: UNK
  6. HERCEPTIN [Suspect]
     Indication: BREAST CANCER METASTATIC
     Dosage: UNK
     Dates: start: 200912
  7. HERCEPTIN [Suspect]
     Indication: BREAST CANCER RECURRENT
  8. VITAMIN C [Concomitant]
     Dosage: UNK
  9. NEURONTIN [Concomitant]
     Dosage: UNK
  10. ATIVAN [Concomitant]
     Dosage: UNK
  11. SALINE FLUSH [Concomitant]
     Dosage: UNK
  12. BENICAR HCT [Concomitant]
     Dosage: UNK

REACTIONS (21)
  - Road traffic accident [Unknown]
  - Splenic rupture [Unknown]
  - Gastrointestinal injury [Unknown]
  - Surgery [Unknown]
  - Fracture [Unknown]
  - Skin mass [Recovered/Resolved]
  - Fat necrosis [Recovered/Resolved]
  - Neuropathy peripheral [Not Recovered/Not Resolved]
  - Palmar-plantar erythrodysaesthesia syndrome [Not Recovered/Not Resolved]
  - Cataract [Unknown]
  - Visual acuity reduced [Unknown]
  - Anxiety [Unknown]
  - Joint stiffness [Unknown]
  - Insomnia [Unknown]
  - Dry eye [Unknown]
  - Weight decreased [Unknown]
  - Skin irritation [Unknown]
  - Musculoskeletal disorder [Unknown]
  - Cough [Unknown]
  - Hyperaesthesia [Unknown]
  - Pain [Unknown]
